FAERS Safety Report 6462016-3 (Version None)
Quarter: 2009Q4

REPORT INFORMATION
  Report Type: 
  Country: None (occurrence: None)
  Receive Date: 20091130
  Receipt Date: 20090818
  Transmission Date: 20100525
  Serious: Yes (Other)
  Sender: FDA-Public Use
  Company Number: PHHY2009DE31672

PATIENT
  Sex: Male
  Weight: 70 kg

DRUGS (1)
  1. EXTAVIA [Suspect]
     Indication: MULTIPLE SCLEROSIS
     Dosage: 0.5 ML, QOD
     Route: 058
     Dates: start: 20090601, end: 20090716

REACTIONS (4)
  - DERMATITIS ALLERGIC [None]
  - HYPERHIDROSIS [None]
  - RASH GENERALISED [None]
  - URTICARIA [None]
